FAERS Safety Report 8123248-1 (Version None)
Quarter: 2012Q1

REPORT INFORMATION
  Report Type: 
  Country: None (occurrence: None)
  Receive Date: 20120208
  Receipt Date: 20120131
  Transmission Date: 20120608
  Serious: No
  Sender: FDA-Public Use
  Company Number: US-B.I. PHARMACEUTICALS,INC./RIDGEFIELD-2012-BP-01872BP

PATIENT
  Sex: Female

DRUGS (11)
  1. VITAMIN D [Concomitant]
     Indication: FATIGUE
     Dosage: 2000 U
     Route: 048
  2. PRADAXA [Suspect]
     Dosage: 300 MG
     Route: 048
     Dates: start: 20120121
  3. IMODIUM [Concomitant]
     Indication: DIARRHOEA
     Route: 048
  4. NEXIUM [Concomitant]
     Indication: GASTROENTERITIS EOSINOPHILIC
     Dosage: 20 MG
     Route: 048
  5. CARTIA XT [Concomitant]
     Indication: HYPERTENSION
     Dosage: 180 MG
     Route: 048
  6. METOPROLOL [Concomitant]
     Indication: HYPERTENSION
     Dosage: 100 MG
     Route: 048
  7. CHLORPHENIRAMINE MALEATE [Concomitant]
     Indication: HYPERSENSITIVITY
     Route: 048
  8. HYDROCHLOROTHIAZIDE [Concomitant]
     Indication: HYPERTENSION
     Dosage: 12.5 MG
     Route: 048
  9. PROBIOTICS [Concomitant]
     Indication: DIARRHOEA
     Route: 048
  10. AMLODIPINE [Concomitant]
     Indication: HYPERTENSION
     Dosage: 5 MG
     Route: 048
  11. PRADAXA [Suspect]
     Indication: CEREBROVASCULAR ACCIDENT
     Dosage: 300 MG
     Route: 048
     Dates: start: 20110831, end: 20120113

REACTIONS (5)
  - DIZZINESS [None]
  - MALAISE [None]
  - ASTHENIA [None]
  - MUSCULOSKELETAL STIFFNESS [None]
  - SCIATICA [None]
